FAERS Safety Report 16854234 (Version 1)
Quarter: 2019Q3

REPORT INFORMATION
  Report Type: Spontaneous
  Country: US (occurrence: US)
  Receive Date: 20190926
  Receipt Date: 20190926
  Transmission Date: 20191005
  Serious: No
  Sender: FDA-Public Use
  Company Number: US-BION-007431

PATIENT
  Age: 75 Year
  Sex: Female
  Weight: 76.2 kg

DRUGS (1)
  1. IMODIUM A-D [Suspect]
     Active Substance: LOPERAMIDE HYDROCHLORIDE
     Indication: INFLAMMATORY BOWEL DISEASE
     Route: 048
     Dates: start: 20180301, end: 20180910

REACTIONS (5)
  - Product prescribing error [Not Recovered/Not Resolved]
  - Expired product administered [Not Recovered/Not Resolved]
  - Incorrect dose administered [Not Recovered/Not Resolved]
  - Incorrect product administration duration [Not Recovered/Not Resolved]
  - Product use in unapproved indication [Not Recovered/Not Resolved]
